FAERS Safety Report 7463544-4 (Version None)
Quarter: 2011Q2

REPORT INFORMATION
  Report Type: 
  Country: None (occurrence: None)
  Receive Date: 20110506
  Receipt Date: 20110426
  Transmission Date: 20111010
  Serious: Yes (Hospitalization)
  Sender: FDA-Public Use
  Company Number: ZA-SANOFI-AVENTIS-2011SA026770

PATIENT
  Age: 63 Year
  Weight: 57 kg

DRUGS (6)
  1. CISPLATIN [Suspect]
     Route: 042
     Dates: start: 20110405, end: 20110405
  2. DOCETAXEL [Suspect]
     Route: 042
     Dates: start: 20110405, end: 20110405
  3. FLUOROURACIL [Suspect]
     Route: 042
     Dates: end: 20110408
  4. DOCETAXEL [Suspect]
     Route: 042
     Dates: start: 20110215, end: 20110215
  5. CISPLATIN [Suspect]
     Route: 042
     Dates: start: 20110215, end: 20110215
  6. GRANOCYTE [Suspect]

REACTIONS (1)
  - HYPERKALAEMIA [None]
